FAERS Safety Report 10430956 (Version 2)
Quarter: 2014Q4

REPORT INFORMATION
  Report Type: Spontaneous
  Country: JP (occurrence: JP)
  Receive Date: 20140904
  Receipt Date: 20141103
  Transmission Date: 20150528
  Serious: Yes (Death, Hospitalization, Other)
  Sender: FDA-Public Use
  Company Number: PHHY2013JP161728

PATIENT
  Age: 75 Year
  Sex: Male

DRUGS (1)
  1. DESFERAL [Suspect]
     Active Substance: DEFEROXAMINE MESYLATE
     Indication: IRON OVERLOAD
     Dosage: 500 MG PER DAY
     Route: 065

REACTIONS (4)
  - Diabetic nephropathy [Fatal]
  - Concomitant disease aggravated [Fatal]
  - Serum ferritin increased [Unknown]
  - Pneumonia aspiration [Fatal]
